FAERS Safety Report 17826889 (Version 2)
Quarter: 2020Q2

REPORT INFORMATION
  Report Type: Spontaneous
  Country: BR (occurrence: BR)
  Receive Date: 20200526
  Receipt Date: 20200602
  Transmission Date: 20200714
  Serious: Yes (Other)
  Sender: FDA-Public Use
  Company Number: NVSC2020BR143761

PATIENT

DRUGS (2)
  1. SANDOSTATIN LAR INJECTION NEEDLE (DEVICE) [Suspect]
     Active Substance: DEVICE
     Indication: PRODUCT USED FOR UNKNOWN INDICATION
     Route: 065
  2. SANDOSTATIN LAR DEPOT [Suspect]
     Active Substance: OCTREOTIDE ACETATE
     Indication: PRODUCT USED FOR UNKNOWN INDICATION
     Dosage: 60 MG (EACH 28 DAYS)
     Route: 065

REACTIONS (2)
  - Device difficult to use [Unknown]
  - Lipodystrophy acquired [Unknown]
